FAERS Safety Report 7588322-7 (Version None)
Quarter: 2011Q3

REPORT INFORMATION
  Report Type: 
  Country: None (occurrence: None)
  Receive Date: 20110705
  Receipt Date: 20100108
  Transmission Date: 20111222
  Serious: Yes (Death, Other)
  Sender: FDA-Public Use
  Company Number: US-BAYER-201010317NA

PATIENT
  Age: 74 Year
  Sex: Female
  Weight: 63.492 kg

DRUGS (20)
  1. DEXAMETHASONE [Concomitant]
     Dosage: 10 MG, UNK
     Route: 042
     Dates: start: 20031104, end: 20031104
  2. TRASYLOL [Suspect]
     Dosage: 25ML/HR, INFUSION
     Route: 042
     Dates: start: 20031110, end: 20031110
  3. LIDOCAINE [Concomitant]
     Dosage: 100 MG, UNK
     Route: 042
     Dates: start: 20031110, end: 20031110
  4. FELODIPINE [Concomitant]
     Dosage: TITRATED
     Dates: start: 20031110
  5. HEPARIN [Concomitant]
     Dosage: 2000 U, UNK
     Dates: start: 20031110
  6. PROPOFOL [Concomitant]
     Indication: ANAESTHETIC PREMEDICATION
     Dosage: 250 MG, UNK
     Route: 042
     Dates: start: 20031110, end: 20031110
  7. INSULIN [Concomitant]
     Dosage: TITRATED
     Route: 042
     Dates: start: 20031110
  8. METOPROLOL TARTRATE [Concomitant]
     Dosage: 5 MG, UNK
     Route: 048
     Dates: start: 20031103
  9. NITROGLYCERIN [Concomitant]
     Dosage: TITRATED
     Route: 042
     Dates: start: 20031110
  10. FUROSEMIDE [Concomitant]
     Dosage: UNK
     Route: 042
     Dates: start: 20031104
  11. NITROGLYCERIN [Concomitant]
     Dosage: 1 INCH EVERY 6 HOURS
     Route: 061
     Dates: start: 20031025
  12. COZAAR [Concomitant]
     Dosage: 100 MG, QD
  13. NITROGLYCERIN [Concomitant]
     Dosage: TITRATED
     Route: 042
     Dates: start: 20031104
  14. SUFENTANIL CITRATE [Concomitant]
     Dosage: 150 ?G, UNK
     Route: 042
     Dates: start: 20031110
  15. TRASYLOL [Suspect]
     Indication: PRODUCT USED FOR UNKNOWN INDICATION
     Dosage: 100 ML, CARDIOPULMONARY BYPASS PRIME
     Route: 042
     Dates: start: 20031110, end: 20031110
  16. ACETYLSALICYLIC ACID SRT [Concomitant]
     Dosage: 325 MG, UNK
     Route: 048
     Dates: start: 20031104
  17. CEFAZOLIN [Concomitant]
     Dosage: 1 G, UNK
     Route: 042
     Dates: start: 20031103, end: 20031105
  18. HEPARIN [Concomitant]
     Dosage: TITRATED
     Route: 042
     Dates: start: 20031104, end: 20031104
  19. METOPROLOL TARTRATE [Concomitant]
     Dosage: 50 MG, TID
     Route: 048
     Dates: start: 20031103
  20. TRASYLOL [Suspect]
     Dosage: 100 ML, LOADING DOSE
     Route: 042
     Dates: start: 20031110, end: 20031110

REACTIONS (10)
  - ANXIETY [None]
  - RENAL INJURY [None]
  - UNEVALUABLE EVENT [None]
  - RENAL FAILURE [None]
  - INJURY [None]
  - FEAR [None]
  - PAIN [None]
  - EMOTIONAL DISTRESS [None]
  - RENAL IMPAIRMENT [None]
  - STRESS [None]
